FAERS Safety Report 5931319-0 (Version None)
Quarter: 2008Q4

REPORT INFORMATION
  Report Type: 
  Country: None (occurrence: None)
  Receive Date: 20081027
  Receipt Date: 20081021
  Transmission Date: 20090506
  Serious: Yes (Hospitalization, Disabling, Other)
  Sender: FDA-Public Use
  Company Number: US-MERCK-0608USA05353

PATIENT
  Age: 71 Year
  Sex: Female

DRUGS (9)
  1. FOSAMAX [Suspect]
     Indication: OSTEOPOROSIS
     Route: 048
     Dates: start: 19990119, end: 20010225
  2. FOSAMAX [Suspect]
     Route: 048
     Dates: start: 20010226, end: 20041001
  3. FOSAMAX [Suspect]
     Route: 048
     Dates: end: 20060215
  4. PRILOSEC [Concomitant]
     Route: 065
  5. HYZAAR [Concomitant]
     Route: 065
  6. ZOCOR [Concomitant]
     Route: 065
  7. CIPRO [Concomitant]
     Route: 065
  8. CLONAZEPAM [Concomitant]
     Route: 065
  9. CLINDAMYCIN [Concomitant]
     Route: 065

REACTIONS (42)
  - ADHESION [None]
  - ADVERSE DRUG REACTION [None]
  - BLOOD CHOLESTEROL INCREASED [None]
  - BLOOD CREATININE INCREASED [None]
  - BLOOD UREA INCREASED [None]
  - CARDIAC DISORDER [None]
  - CAROTID ARTERY DISEASE [None]
  - CAROTID ARTERY OCCLUSION [None]
  - CAROTID BRUIT [None]
  - CEREBROVASCULAR ACCIDENT [None]
  - CHRONIC OBSTRUCTIVE PULMONARY DISEASE [None]
  - CLAUSTROPHOBIA [None]
  - COLONIC STENOSIS [None]
  - CONSTIPATION [None]
  - CYSTITIS [None]
  - DEFORMITY [None]
  - DENTAL CARIES [None]
  - DEVICE RELATED INFECTION [None]
  - DIARRHOEA [None]
  - DRUG HYPERSENSITIVITY [None]
  - DRUG INTOLERANCE [None]
  - DYSLIPIDAEMIA [None]
  - EMPHYSEMA [None]
  - GRAVITATIONAL OEDEMA [None]
  - HYPERSENSITIVITY [None]
  - HYPOTENSION [None]
  - LUNG INFECTION [None]
  - OEDEMA PERIPHERAL [None]
  - ORAL DISORDER [None]
  - ORAL INFECTION [None]
  - OSTEOARTHRITIS [None]
  - OSTEOMYELITIS [None]
  - OSTEONECROSIS [None]
  - PAIN [None]
  - PULMONARY MASS [None]
  - RHINITIS [None]
  - SEASONAL ALLERGY [None]
  - SPINAL OSTEOARTHRITIS [None]
  - TEMPOROMANDIBULAR JOINT SYNDROME [None]
  - TOOTH ABSCESS [None]
  - TOOTH INFECTION [None]
  - UPPER RESPIRATORY TRACT INFECTION [None]
